FAERS Safety Report 5566280-4 (Version None)
Quarter: 2007Q4

REPORT INFORMATION
  Report Type: 
  Country: None (occurrence: None)
  Receive Date: 20071219
  Receipt Date: 20071211
  Transmission Date: 20080405
  Serious: Yes (Other)
  Sender: FDA-Public Use
  Company Number: JP-BAYER-200710996BYL

PATIENT
  Age: 36 Year
  Sex: Female

DRUGS (2)
  1. ASPIRIN [Suspect]
     Indication: PROTEIN S DEFICIENCY
     Route: 048
  2. HEPARIN [Suspect]
     Indication: ANTIBODY TEST POSITIVE
     Route: 065

REACTIONS (5)
  - AMNIOCENTESIS ABNORMAL [None]
  - FOETAL GROWTH RETARDATION [None]
  - PLACENTAL CHORIOANGIOMA [None]
  - PREMATURE LABOUR [None]
  - RETROPLACENTAL HAEMATOMA [None]
